FAERS Safety Report 9008627 (Version 1)
Quarter: 2013Q1

REPORT INFORMATION
  Report Type: Spontaneous
  Country: US (occurrence: US)
  Receive Date: 20130111
  Receipt Date: 20130111
  Transmission Date: 20140127
  Serious: Yes (Other)
  Sender: FDA-Public Use
  Company Number: US-ELI_LILLY_AND_COMPANY-US201301001186

PATIENT
  Sex: Male

DRUGS (3)
  1. CYMBALTA [Suspect]
     Indication: DEPRESSION
     Dosage: 30 MG, QD
     Dates: start: 2008
  2. ATIVAN [Concomitant]
     Indication: AGGRESSION
     Dosage: UNK, UNKNOWN
  3. PLAVIX [Concomitant]
     Dosage: UNK, UNKNOWN

REACTIONS (5)
  - Dementia Alzheimer^s type [Unknown]
  - Suicidal ideation [Unknown]
  - Depressed mood [Unknown]
  - Crying [Unknown]
  - Dysphagia [Unknown]
